FAERS Safety Report 7315522-3 (Version None)
Quarter: 2011Q1

REPORT INFORMATION
  Report Type: 
  Country: None (occurrence: None)
  Receive Date: 20110218
  Receipt Date: 20110218
  Transmission Date: 20110831
  Serious: Yes (Hospitalization)
  Sender: FDA-Public Use
  Company Number: None

PATIENT
  Age: 74 Year
  Sex: Male
  Weight: 92 kg

DRUGS (14)
  1. COUMADIN [Suspect]
     Indication: ATRIAL FIBRILLATION
     Dosage: 5MG MTWTHSUN PO
     Route: 048
  2. BUMEX [Concomitant]
  3. ADVAIR [Concomitant]
  4. IMDUR [Concomitant]
  5. XALATAN [Concomitant]
  6. METOPROLOL [Concomitant]
  7. ZOCOR [Concomitant]
  8. COUMADIN [Suspect]
     Indication: CORONARY ARTERY DISEASE
     Dosage: 7.5MG FRI + SAT PO
     Route: 048
  9. QUINAPRIL [Concomitant]
  10. NITROGLYCERIN [Concomitant]
  11. ALBUTEROL [Concomitant]
  12. POTASSIUM CHLORIDE [Concomitant]
  13. PULMICORT [Concomitant]
  14. CARDIA XT [Concomitant]

REACTIONS (7)
  - ASTHENIA [None]
  - COAGULOPATHY [None]
  - FALL [None]
  - PNEUMONIA ASPIRATION [None]
  - VOMITING [None]
  - INTERNATIONAL NORMALISED RATIO INCREASED [None]
  - RESPIRATORY FAILURE [None]
